FAERS Safety Report 9612084 (Version 2)
Quarter: 2013Q4

REPORT INFORMATION
  Report Type: Spontaneous
  Country: US (occurrence: US)
  Receive Date: 20131010
  Receipt Date: 20131112
  Transmission Date: 20140711
  Serious: Yes (Other)
  Sender: FDA-Public Use
  Company Number: US-ASTELLAS-2013US009076

PATIENT
  Age: 90 Year
  Sex: Female

DRUGS (6)
  1. MYRBETRIQ [Suspect]
     Indication: URINARY INCONTINENCE
     Dosage: 25 MG, UID/QD
     Route: 048
     Dates: start: 20130821, end: 20130821
  2. AMLODIPINE [Concomitant]
     Indication: PRODUCT USED FOR UNKNOWN INDICATION
     Dosage: UNK
     Route: 065
  3. CYMBALTA [Concomitant]
     Indication: PRODUCT USED FOR UNKNOWN INDICATION
     Dosage: UNK
     Route: 065
  4. MIRAPEX [Concomitant]
     Indication: RESTLESS LEGS SYNDROME
     Dosage: 1 MG, PRN
     Route: 065
  5. AZITHROMYCIN [Concomitant]
     Indication: BRONCHITIS
     Dosage: UNK
     Route: 065
     Dates: start: 20130807
  6. ROBITUSSIN WITH CODEINE [Concomitant]
     Indication: COUGH
     Dosage: 4OZ 1-2 TEASPOON EVERY 6-8 HOURS AS NEEDED
     Route: 048
     Dates: start: 20130807

REACTIONS (5)
  - Hypertension [Recovered/Resolved]
  - Anaemia [Unknown]
  - Food craving [Unknown]
  - Oedema peripheral [Unknown]
  - Fatigue [Unknown]
